FAERS Safety Report 8972945 (Version 1)
Quarter: 2012Q4

REPORT INFORMATION
  Report Type: 
  Country: US (occurrence: US)
  Receive Date: 20121218
  Receipt Date: 20121218
  Transmission Date: 20130627
  Serious: No
  Sender: FDA-Public Use
  Company Number: US-BRISTOL-MYERS SQUIBB COMPANY-16454852

PATIENT
  Age: 44 Year
  Sex: Male

DRUGS (12)
  1. ABILIFY TABS [Suspect]
     Indication: DEPRESSION
     Dosage: also taken at a dose 1mg and 1.5mg
     Dates: start: 201011
  2. AMBIEN [Concomitant]
  3. DONNATAL [Concomitant]
  4. GLUCOSAMINE [Concomitant]
  5. LORAZEPAM [Concomitant]
  6. OMEPRAZOLE [Concomitant]
  7. TAGAMET [Concomitant]
  8. VITAMIN B COMPLEX [Concomitant]
  9. VITAMIN D [Concomitant]
  10. WELLBUTRIN [Concomitant]
  11. ZINC [Concomitant]
  12. CLARITIN D [Concomitant]

REACTIONS (5)
  - Insomnia [Unknown]
  - Abdominal pain upper [Unknown]
  - Fatigue [Unknown]
  - Dyskinesia [Unknown]
  - Incorrect dose administered [Unknown]
